FAERS Safety Report 4522712-1 (Version None)
Quarter: 2004Q4

REPORT INFORMATION
  Report Type: 
  Country: None (occurrence: None)
  Receive Date: 20041207
  Receipt Date: 20041118
  Transmission Date: 20050328
  Serious: Yes (Other)
  Sender: FDA-Public Use
  Company Number: JP_041004700

PATIENT
  Age: 62 Year
  Sex: Female
  Weight: 52 kg

DRUGS (5)
  1. EVISTA [Suspect]
     Indication: OSTEOPOROSIS POSTMENOPAUSAL
     Dosage: 60 MG/1 DAY
     Dates: start: 20040716, end: 20040923
  2. OSTEN (IPRIFLAVONE) [Concomitant]
  3. ALFAROL (ALFACALCIDOL) [Concomitant]
  4. ASPARA-CA (ASPARTATE CALCIUM) [Concomitant]
  5. ELCATONIN [Concomitant]

REACTIONS (2)
  - FEELING ABNORMAL [None]
  - PULMONARY EMBOLISM [None]
